FAERS Safety Report 20108671 (Version 3)
Quarter: 2021Q4

REPORT INFORMATION
  Report Type: Spontaneous
  Country: US (occurrence: None)
  Receive Date: 20211124
  Receipt Date: 20211227
  Transmission Date: 20220303
  Serious: Yes (Hospitalization)
  Sender: FDA-Public Use
  Company Number: 2021A799473

PATIENT
  Age: 24355 Day
  Sex: Male
  Weight: 117.9 kg

DRUGS (15)
  1. BYDUREON BCISE [Suspect]
     Active Substance: EXENATIDE
     Indication: Type 2 diabetes mellitus
     Route: 058
     Dates: start: 20200921
  2. BYDUREON BCISE [Suspect]
     Active Substance: EXENATIDE
     Indication: Type 2 diabetes mellitus
     Route: 058
  3. FARXIGA [Suspect]
     Active Substance: DAPAGLIFLOZIN PROPANEDIOL
     Indication: Diabetes mellitus
     Dosage: 10.0MG UNKNOWN
     Route: 048
     Dates: start: 20160225, end: 20210704
  4. INSULIN NOS [Concomitant]
     Active Substance: INSULIN NOS
     Dosage: TWO INSULIN SHOTS EACH DAY
     Route: 065
  5. NYSTATIN [Concomitant]
     Active Substance: NYSTATIN
     Dosage: TWO AFFECTED AREA BID
     Route: 065
     Dates: start: 20211122
  6. ALPRAZOLAM [Concomitant]
     Active Substance: ALPRAZOLAM
     Dosage: 1 TABLET THREE TIMES DAILY, AS NEEDED.
     Route: 048
     Dates: start: 20211013
  7. COLACE [Concomitant]
     Active Substance: DOCUSATE SODIUM
     Route: 048
     Dates: start: 20211005
  8. GLIMEPIRIDE [Concomitant]
     Active Substance: GLIMEPIRIDE
     Route: 048
     Dates: start: 20210915
  9. LISINOPRIL [Concomitant]
     Active Substance: LISINOPRIL
     Route: 048
     Dates: start: 20210915
  10. HYDROCHLOROTHIAZIDE [Concomitant]
     Active Substance: HYDROCHLOROTHIAZIDE
     Route: 048
     Dates: start: 20210915
  11. ACETAMINOPHEN\HYDROCODONE BITARTRATE [Concomitant]
     Active Substance: ACETAMINOPHEN\HYDROCODONE BITARTRATE
     Dosage: 1 TABLET THREE TIMES DAILY AS NEEDED
     Route: 048
     Dates: start: 20210915
  12. TRIAMCINOLONE ACETONIDE [Concomitant]
     Active Substance: TRIAMCINOLONE ACETONIDE
     Dosage: APPLICATION TWICE DAILY AS NEEDED TO SMALL AREAS AS LOWER LEGS
     Route: 065
     Dates: start: 20210915
  13. HUMALOG [Concomitant]
     Active Substance: INSULIN LISPRO
     Dosage: 25 UNIT FIVE MINUTES BEFORE BREAKFAST AND DINNER
     Route: 065
     Dates: start: 20210206
  14. FLUOXETINE [Concomitant]
     Active Substance: FLUOXETINE HYDROCHLORIDE
     Route: 048
     Dates: start: 20210504
  15. ATORVASTATIN CALCIUM [Concomitant]
     Active Substance: ATORVASTATIN CALCIUM
     Route: 048
     Dates: start: 20211003

REACTIONS (6)
  - Fournier^s gangrene [Recovered/Resolved]
  - Injection site haemorrhage [Recovered/Resolved]
  - Injection site pain [Not Recovered/Not Resolved]
  - Injection site mass [Not Recovered/Not Resolved]
  - Device use issue [Recovered/Resolved]
  - Drug delivery system malfunction [Recovered/Resolved]

NARRATIVE: CASE EVENT DATE: 20210704
